FAERS Safety Report 6465120-9 (Version None)
Quarter: 2009Q4

REPORT INFORMATION
  Report Type: 
  Country: None (occurrence: None)
  Receive Date: 20091201
  Receipt Date: 20091120
  Transmission Date: 20100525
  Serious: Yes (Other)
  Sender: FDA-Public Use
  Company Number: US-MYLANLABS-2009S1020214

PATIENT
  Sex: Male

DRUGS (1)
  1. PERFOROMIST [Suspect]
     Indication: INCREASED UPPER AIRWAY SECRETION

REACTIONS (2)
  - COUGH [None]
  - HERNIA [None]
